FAERS Safety Report 4289188-3 (Version None)
Quarter: 2004Q1

REPORT INFORMATION
  Report Type: 
  Country: None (occurrence: None)
  Receive Date: 20040206
  Receipt Date: 20040126
  Transmission Date: 20041129
  Serious: Yes (Life-Threatening, Hospitalization)
  Sender: FDA-Public Use
  Company Number: 2003114618

PATIENT
  Age: 79 Year
  Sex: Male

DRUGS (8)
  1. SULPERAZON (CEFOPERAZONE, SULBACTAM) [Suspect]
     Indication: PNEUMONIA ASPIRATION
     Dosage: 2 GRAM, INTRAVENOUS
     Route: 042
     Dates: start: 20030326
  2. CEFCAPENE PIVOXIL HYDROCHLORIDE (CEFCAPENE PIVOXIL HYDROCHLORIDE) [Suspect]
     Indication: ILL-DEFINED DISORDER
     Dates: start: 20030917, end: 20030923
  3. MINOCYCLINE HYDROCHLORIDE [Suspect]
     Indication: INFECTION
     Dosage: 200 MG (BID), INTRAVENOUS
     Route: 042
     Dates: start: 20030927, end: 20031002
  4. FAROPENEM SODIUM (FAROPEEM SODIUM) [Suspect]
     Indication: INFECTION
     Dosage: 400 MG (BID), ORAL
     Route: 048
     Dates: start: 20031002, end: 20031005
  5. VALPROATE SODIUM [Concomitant]
  6. BROMOCRIPTINE MESYLATE [Concomitant]
  7. ZONISAMIDE [Concomitant]
  8. LANSOPRAZOLE [Concomitant]

REACTIONS (5)
  - HAEMORRHAGE SUBCUTANEOUS [None]
  - HAEMORRHAGIC DIATHESIS [None]
  - HYPOCOAGULABLE STATE [None]
  - INFECTION [None]
  - PNEUMONIA ASPIRATION [None]
